FAERS Safety Report 13366463 (Version 1)
Quarter: 2017Q1

REPORT INFORMATION
  Report Type: Report from Study
  Country: None (occurrence: US)
  Receive Date: 20170323
  Receipt Date: 20170323
  Transmission Date: 20170429
  Serious: Yes (Other)
  Sender: FDA-Public Use
  Company Number: US-ABBVIE-17P-163-1912549-00

PATIENT
  Age: 26 Year
  Sex: Female

DRUGS (1)
  1. LUPRON DEPOT [Suspect]
     Active Substance: LEUPROLIDE ACETATE
     Indication: ENDOMETRIOSIS
     Route: 065
     Dates: start: 2014

REACTIONS (7)
  - Adverse drug reaction [Unknown]
  - Pain [Unknown]
  - Endometriosis [Recovering/Resolving]
  - Endometriosis [Unknown]
  - Mood swings [Recovered/Resolved]
  - Endometriosis [Recovering/Resolving]
  - Pelvic pain [Not Recovered/Not Resolved]

NARRATIVE: CASE EVENT DATE: 2014
